FAERS Safety Report 17162780 (Version 1)
Quarter: 2019Q4

REPORT INFORMATION
  Report Type: Spontaneous
  Country: US (occurrence: US)
  Receive Date: 20191216
  Receipt Date: 20191216
  Transmission Date: 20200122
  Serious: Yes (Hospitalization)
  Sender: FDA-Public Use
  Company Number: None

PATIENT
  Age: 58 Year
  Sex: Female
  Weight: 49.2 kg

DRUGS (15)
  1. PANTOPRAZOLE 40 MG PO BID [Concomitant]
  2. MELATONIN 5 MG PO QHS [Concomitant]
  3. BACTRIM DS800-160 MG DAILY 3 X WEEK [Concomitant]
  4. TACROLIMUS 2 MG PO BID [Concomitant]
  5. FOLIC ACID 1 MG PO BIB [Concomitant]
  6. TRIAMCINOLONE ACETONIDE 0.1% TOPICAL DAILY [Concomitant]
  7. AZACITIDINE. [Suspect]
     Active Substance: AZACITIDINE
     Indication: ACUTE MYELOID LEUKAEMIA
     Route: 058
     Dates: start: 20191118
  8. ACYCLOVIR 400 MG PO BID [Concomitant]
  9. FLUCONAZOLE 200 MG PO BID [Concomitant]
  10. PROCHLORPERAZINE 10 MG PO Q6H PRN [Concomitant]
  11. MULTIPLE VITAMIN PO DAILY [Concomitant]
  12. TRAZODONE 50 MG PO QHS [Concomitant]
  13. URODIOL 300 MG PO TID [Concomitant]
  14. TRAMADOL 50 MG PO Q6H PRN [Concomitant]
  15. VALPORIC ACID [Suspect]
     Active Substance: VALPROIC ACID
     Indication: ACUTE MYELOID LEUKAEMIA
     Route: 048
     Dates: start: 20191118

REACTIONS (1)
  - Enterobacter bacteraemia [None]

NARRATIVE: CASE EVENT DATE: 20191214
